FAERS Safety Report 7656131-6 (Version None)
Quarter: 2011Q3

REPORT INFORMATION
  Report Type: 
  Country: None (occurrence: None)
  Receive Date: 20110804
  Receipt Date: 20110801
  Transmission Date: 20111222
  Serious: Yes (Death, Hospitalization, Other)
  Sender: FDA-Public Use
  Company Number: NZ-B.I. PHARMACEUTICALS,INC./RIDGEFIELD-2011-AU-00463AU

PATIENT
  Age: 92 Year
  Sex: Male
  Weight: 49 kg

DRUGS (2)
  1. PRADAXA [Suspect]
     Dosage: 300 MG
     Dates: start: 20110705
  2. WARFARIN SODIUM [Concomitant]
     Indication: CEREBROVASCULAR ACCIDENT PROPHYLAXIS
     Dates: start: 20110601, end: 20110705

REACTIONS (5)
  - MELAENA [None]
  - GASTRITIS [None]
  - DEATH [None]
  - RECTAL HAEMORRHAGE [None]
  - GASTRIC CANCER [None]
